FAERS Safety Report 6160948-7 (Version None)
Quarter: 2009Q2

REPORT INFORMATION
  Report Type: 
  Country: None (occurrence: None)
  Receive Date: 20090417
  Receipt Date: 20090417
  Transmission Date: 20091009
  Serious: No
  Sender: FDA-Public Use
  Company Number: None

PATIENT
  Age: 85 Year
  Sex: Male
  Weight: 64 kg

DRUGS (7)
  1. PHENYTOIN INJECTION 100 MG  PER 2 ML BAXTER [Suspect]
     Indication: CONVULSION
     Dosage: 200 MG Q8 HOURS IV
     Route: 042
     Dates: start: 20090330, end: 20090401
  2. DIGOXIN [Concomitant]
  3. DILTIAZEM [Concomitant]
  4. FUROSEMIDE [Concomitant]
  5. INSULIN [Concomitant]
  6. MEROPENEM [Concomitant]
  7. MORPHINE [Concomitant]

REACTIONS (3)
  - PURPLE GLOVE SYNDROME [None]
  - RESPIRATORY FAILURE [None]
  - SUBDURAL HAEMATOMA [None]
